FAERS Safety Report 23696602 (Version 8)
Quarter: 2025Q1

REPORT INFORMATION
  Report Type: Spontaneous
  Country: US (occurrence: US)
  Receive Date: 20240402
  Receipt Date: 20250220
  Transmission Date: 20250408
  Serious: Yes (Other)
  Sender: ROCHE
  Company Number: US-ROCHE-3505888

PATIENT
  Age: 47 Year
  Sex: Female
  Weight: 102 kg

DRUGS (33)
  1. OCREVUS [Suspect]
     Active Substance: OCRELIZUMAB
     Indication: Relapsing-remitting multiple sclerosis
     Route: 040
     Dates: start: 20230315
  2. OCREVUS [Suspect]
     Active Substance: OCRELIZUMAB
     Route: 040
  3. OCREVUS [Suspect]
     Active Substance: OCRELIZUMAB
     Route: 040
  4. OCREVUS [Suspect]
     Active Substance: OCRELIZUMAB
     Route: 040
  5. BACTRIM [Suspect]
     Active Substance: SULFAMETHOXAZOLE\TRIMETHOPRIM
     Indication: Product used for unknown indication
     Route: 065
  6. SYNTHROID [Concomitant]
     Active Substance: LEVOTHYROXINE SODIUM
     Indication: Thyroid disorder
     Route: 048
  7. SOLU-MEDROL [Concomitant]
     Active Substance: METHYLPREDNISOLONE SODIUM SUCCINATE
     Route: 040
  8. SOLU-MEDROL [Concomitant]
     Active Substance: METHYLPREDNISOLONE SODIUM SUCCINATE
  9. SOLU-MEDROL [Concomitant]
     Active Substance: METHYLPREDNISOLONE SODIUM SUCCINATE
  10. BENADRYL [Concomitant]
     Active Substance: DIPHENHYDRAMINE HYDROCHLORIDE
     Route: 040
  11. BENADRYL [Concomitant]
     Active Substance: DIPHENHYDRAMINE HYDROCHLORIDE
     Route: 040
  12. BENADRYL [Concomitant]
     Active Substance: DIPHENHYDRAMINE HYDROCHLORIDE
     Route: 040
  13. TYLENOL [Concomitant]
     Active Substance: ACETAMINOPHEN
     Route: 048
  14. DIPHENHYDRAMINE [Concomitant]
     Active Substance: DIPHENHYDRAMINE
  15. WELLBUTRIN [Concomitant]
     Active Substance: BUPROPION HYDROCHLORIDE
  16. CELEBREX [Concomitant]
     Active Substance: CELECOXIB
  17. TRAMADOL [Concomitant]
     Active Substance: TRAMADOL
  18. BACLOFEN [Concomitant]
     Active Substance: BACLOFEN
  19. GABAPENTIN [Concomitant]
     Active Substance: GABAPENTIN
  20. HYDROCODONE [Concomitant]
     Active Substance: HYDROCODONE
  21. ACETAMINOPHEN [Concomitant]
     Active Substance: ACETAMINOPHEN
  22. BUSPIRONE [Concomitant]
     Active Substance: BUSPIRONE HYDROCHLORIDE
  23. ALBUTEROL SULFATE [Concomitant]
     Active Substance: ALBUTEROL SULFATE
  24. NASACORT [Concomitant]
     Active Substance: TRIAMCINOLONE ACETONIDE
  25. FLUOXETINE [Concomitant]
     Active Substance: FLUOXETINE HYDROCHLORIDE
  26. UBRELVY [Concomitant]
     Active Substance: UBROGEPANT
  27. VALIUM [Concomitant]
     Active Substance: DIAZEPAM
  28. MEDROL [Concomitant]
     Active Substance: METHYLPREDNISOLONE
  29. FROVA [Concomitant]
     Active Substance: FROVATRIPTAN SUCCINATE
  30. TOPAMAX [Concomitant]
     Active Substance: TOPIRAMATE
  31. MODAFINIL [Concomitant]
     Active Substance: MODAFINIL
  32. METOPROLOL [Concomitant]
     Active Substance: METOPROLOL
  33. CELECOXIB [Concomitant]
     Active Substance: CELECOXIB

REACTIONS (16)
  - Vulvar dysplasia [Not Recovered/Not Resolved]
  - Drug hypersensitivity [Not Recovered/Not Resolved]
  - Tinnitus [Unknown]
  - Bruxism [Unknown]
  - Weight increased [Unknown]
  - Anosmia [Unknown]
  - Dry eye [Unknown]
  - Wheezing [Unknown]
  - JC polyomavirus test positive [Unknown]
  - Multiple sclerosis relapse [Unknown]
  - Urinary tract infection [Unknown]
  - Infection [Unknown]
  - Tremor [Unknown]
  - Major depression [Unknown]
  - Pain [Unknown]
  - Fatigue [Unknown]

NARRATIVE: CASE EVENT DATE: 20230801
